FAERS Safety Report 8916242 (Version 2)
Quarter: 2013Q1

REPORT INFORMATION
  Report Type: Spontaneous
  Country: JP (occurrence: JP)
  Receive Date: 20121120
  Receipt Date: 20130128
  Transmission Date: 20140127
  Serious: Yes (Life-Threatening, Hospitalization)
  Sender: FDA-Public Use
  Company Number: JP-VIIV HEALTHCARE LIMITED-B0845781A

PATIENT
  Age: 34 Year
  Sex: Male

DRUGS (4)
  1. ZIAGEN [Suspect]
     Indication: HIV INFECTION
     Dosage: 300MG TWICE PER DAY
     Route: 048
     Dates: start: 200504, end: 201106
  2. RETROVIR [Suspect]
     Indication: HIV INFECTION
     Dosage: 2IUAX TWICE PER DAY
     Route: 048
     Dates: start: 200504, end: 201106
  3. KALETRA [Suspect]
     Indication: HIV INFECTION
     Dosage: 2IUAX TWICE PER DAY
     Route: 048
     Dates: start: 200504, end: 200801
  4. NEVIRAPINE [Concomitant]
     Indication: HIV INFECTION
     Dosage: 1IUAX TWICE PER DAY
     Route: 048
     Dates: start: 200811, end: 201106

REACTIONS (1)
  - Acute myocardial infarction [Recovered/Resolved]
